FAERS Safety Report 4550119-X (Version None)
Quarter: 2005Q1

REPORT INFORMATION
  Report Type: 
  Country: None (occurrence: None)
  Receive Date: 20050110
  Receipt Date: 20041227
  Transmission Date: 20050727
  Serious: Yes (Hospitalization)
  Sender: FDA-Public Use
  Company Number: 8007142

PATIENT
  Age: 55 Year
  Sex: Male
  Weight: 71 kg

DRUGS (5)
  1. KEPPRA [Suspect]
     Indication: CONVULSION
     Dosage: PO
     Route: 048
     Dates: start: 20020101, end: 20030601
  2. KEPPRA [Suspect]
     Indication: CONVULSION
     Dosage: 2000 MG 2/D PO
     Route: 048
     Dates: start: 20030601, end: 20040823
  3. KEPPRA [Suspect]
     Indication: CONVULSION
     Dosage: 1500 MG 2/D PO
     Route: 048
     Dates: start: 20040824, end: 20040831
  4. KEPPRA [Suspect]
     Indication: CONVULSION
     Dosage: 1000 MG 2/D PO
     Route: 048
     Dates: start: 20040901, end: 20040902
  5. KEPPRA [Suspect]
     Indication: CONVULSION
     Dosage: 2000 MG 2/D PO
     Route: 048
     Dates: start: 20040903

REACTIONS (9)
  - BRADYKINESIA [None]
  - BRAIN NEOPLASM [None]
  - CEREBRAL VENTRICLE DILATATION [None]
  - COORDINATION ABNORMAL [None]
  - DELIRIUM [None]
  - HALLUCINATION [None]
  - MENTAL STATUS CHANGES [None]
  - POST PROCEDURAL COMPLICATION [None]
  - THINKING ABNORMAL [None]
